FAERS Safety Report 13456052 (Version 3)
Quarter: 2017Q2

REPORT INFORMATION
  Report Type: Report from Study
  Country: US (occurrence: US)
  Receive Date: 20170419
  Receipt Date: 20170504
  Transmission Date: 20170830
  Serious: Yes (Death, Hospitalization, Other)
  Sender: FDA-Public Use
  Company Number: US-GILEAD-2017-0252893

PATIENT
  Age: 70 Year
  Sex: Male

DRUGS (22)
  1. AMBRISENTAN [Suspect]
     Active Substance: AMBRISENTAN
     Indication: PULMONARY HYPERTENSION
     Dosage: 10 MG, QD
     Route: 048
     Dates: start: 20160218
  2. HYDROXYCHLOROQUINE [Concomitant]
     Active Substance: HYDROXYCHLOROQUINE
  3. VELETRI [Concomitant]
     Active Substance: EPOPROSTENOL
  4. METOLAZONE. [Concomitant]
     Active Substance: METOLAZONE
  5. SPIRONOLACTONE. [Concomitant]
     Active Substance: SPIRONOLACTONE
  6. OXYCODONE [Concomitant]
     Active Substance: OXYCODONE
  7. MYCOPHENOLATE [Concomitant]
     Active Substance: MYCOPHENOLIC ACID
  8. METOPROLOL. [Concomitant]
     Active Substance: METOPROLOL
  9. PIMECROLIMUS [Concomitant]
     Active Substance: PIMECROLIMUS
  10. POTASSIUM CHLORIDE. [Concomitant]
     Active Substance: POTASSIUM CHLORIDE
  11. ALLOPURINOL. [Concomitant]
     Active Substance: ALLOPURINOL
  12. DIGOXIN. [Concomitant]
     Active Substance: DIGOXIN
     Indication: ATRIAL FIBRILLATION
  13. PRADAXA [Concomitant]
     Active Substance: DABIGATRAN ETEXILATE MESYLATE
  14. FLUTICASONE. [Concomitant]
     Active Substance: FLUTICASONE
  15. OCULAR LUBRICANT                   /00445101/ [Concomitant]
  16. ROSUVASTATIN. [Concomitant]
     Active Substance: ROSUVASTATIN
  17. AMBRISENTAN [Suspect]
     Active Substance: AMBRISENTAN
     Indication: SCLERODERMA
  18. LASIX [Concomitant]
     Active Substance: FUROSEMIDE
  19. ASPIRIN                            /00002701/ [Concomitant]
     Active Substance: ASPIRIN
  20. REMODULIN [Concomitant]
     Active Substance: TREPROSTINIL
  21. OMEGA-3 FATTY ACIDS [Concomitant]
     Active Substance: OMEGA-3 FATTY ACIDS
  22. LEVOTHYROXINE. [Concomitant]
     Active Substance: LEVOTHYROXINE

REACTIONS (11)
  - Dehydration [Not Recovered/Not Resolved]
  - Dyspnoea exertional [Unknown]
  - Sepsis [Fatal]
  - Hypotension [Fatal]
  - Cardiac failure [Fatal]
  - Diastolic dysfunction [Unknown]
  - Hypersensitivity [Not Recovered/Not Resolved]
  - Memory impairment [Unknown]
  - Peripheral swelling [Unknown]
  - Viral upper respiratory tract infection [Recovered/Resolved]
  - Fluid retention [Fatal]

NARRATIVE: CASE EVENT DATE: 20170225
